FAERS Safety Report 20973213 (Version 1)
Quarter: 2022Q2

REPORT INFORMATION
  Report Type: Spontaneous
  Country: US (occurrence: US)
  Receive Date: 20220617
  Receipt Date: 20220617
  Transmission Date: 20220721
  Serious: No
  Sender: FDA-Public Use
  Company Number: US-ENDO PHARMACEUTICALS INC-2021-013732

PATIENT
  Age: 12 Year
  Sex: Female
  Weight: 50 kg

DRUGS (2)
  1. SUPPRELIN LA [Suspect]
     Active Substance: HISTRELIN ACETATE
     Indication: Gender dysphoria
     Dosage: UNK UNKNOWN, UNKNOWN
     Route: 065
     Dates: start: 20211019
  2. SUPPRELIN LA [Suspect]
     Active Substance: HISTRELIN ACETATE
     Indication: Gender dysphoria
     Dosage: UNK UNKNOWN, UNKNOWN
     Route: 065
     Dates: start: 20211019

REACTIONS (3)
  - Implant site irritation [Unknown]
  - Off label use [Recovered/Resolved]
  - Device expulsion [None]

NARRATIVE: CASE EVENT DATE: 20211019
